FAERS Safety Report 12488448 (Version 1)
Quarter: 2016Q2

REPORT INFORMATION
  Report Type: Spontaneous
  Country: US (occurrence: US)
  Receive Date: 20160622
  Receipt Date: 20160622
  Transmission Date: 20160815
  Serious: No
  Sender: FDA-Public Use
  Company Number: US-BAUSCH-2015PROUSA04445

PATIENT
  Age: 74 Year
  Sex: Male
  Weight: 89.43 kg

DRUGS (1)
  1. PROVENGE [Suspect]
     Active Substance: SIPULEUCEL-T
     Indication: PROSTATE CANCER METASTATIC
     Dosage: 250 ML, SINGLE
     Route: 042
     Dates: start: 20150413, end: 20150413

REACTIONS (3)
  - Malaise [Unknown]
  - Pyrexia [Unknown]
  - Device related infection [Unknown]

NARRATIVE: CASE EVENT DATE: 201504
